FAERS Safety Report 5272533-X (Version None)
Quarter: 2007Q1

REPORT INFORMATION
  Report Type: 
  Country: None (occurrence: None)
  Receive Date: 20070322
  Receipt Date: 20061019
  Transmission Date: 20070707
  Serious: No
  Sender: FDA-Public Use
  Company Number: US-BRISTOL-MYERS SQUIBB COMPANY-13547021

PATIENT
  Age: 60 Year
  Sex: Female
  Weight: 56 kg

DRUGS (5)
  1. KENALOG [Suspect]
     Dosage: KENALOG INJECTED INTO FACIAL SCARS ON 01/2006, 03/2006, AND 4/2006.
     Route: 023
     Dates: start: 20060101
  2. FOSAMAX [Concomitant]
  3. PERCOCET [Concomitant]
  4. CLONIDINE [Concomitant]
  5. MULTI-VITAMIN [Concomitant]

REACTIONS (2)
  - ALOPECIA [None]
  - BLOOD CORTISOL ABNORMAL [None]
